FAERS Safety Report 9478657 (Version 1)
Quarter: 2013Q3

REPORT INFORMATION
  Report Type: Spontaneous
  Country: US (occurrence: None)
  Receive Date: 20130822
  Receipt Date: 20130822
  Transmission Date: 20140515
  Serious: Yes (Other)
  Sender: FDA-Public Use
  Company Number: 001585187A

PATIENT
  Age: 11 Month
  Sex: Male

DRUGS (1)
  1. PROACTIV 1 RENEWING CLEANSER [Suspect]
     Indication: ACNE
     Route: 048
     Dates: start: 20130728

REACTIONS (2)
  - Accidental exposure to product by child [None]
  - Skin irritation [None]
